FAERS Safety Report 5965966-7 (Version None)
Quarter: 2008Q4

REPORT INFORMATION
  Report Type: 
  Country: None (occurrence: None)
  Receive Date: 20081121
  Receipt Date: 20081121
  Transmission Date: 20090506
  Serious: Yes (Hospitalization)
  Sender: FDA-Public Use
  Company Number: None

PATIENT
  Age: 82 Year
  Sex: Male
  Weight: 78.64 kg

DRUGS (1)
  1. TERAZOSIN HCL [Suspect]
     Dosage: 10 MG EVERY DAY PO
     Route: 048
     Dates: start: 20050705, end: 20081008

REACTIONS (2)
  - LOSS OF CONSCIOUSNESS [None]
  - SOMNOLENCE [None]
